FAERS Safety Report 21806842 (Version 2)
Quarter: 2023Q1

REPORT INFORMATION
  Report Type: Report from Study
  Country: FR (occurrence: None)
  Receive Date: 20230102
  Receipt Date: 20230110
  Transmission Date: 20230417
  Serious: Yes (Death, Hospitalization)
  Sender: FDA-Public Use
  Company Number: FR-ROCHE-3253121

PATIENT
  Age: 64 Year
  Sex: Female

DRUGS (16)
  1. ATEZOLIZUMAB [Suspect]
     Active Substance: ATEZOLIZUMAB
     Indication: Ovarian cancer
     Dosage: ON 14-JUN-2017 THE PATIENT RECEIVED LAST DOSE OF ATEZOLIZUMAB BEFORE THE EVENT.
     Route: 042
     Dates: start: 20170115, end: 20170705
  2. BEVACIZUMAB [Suspect]
     Active Substance: BEVACIZUMAB
     Indication: Ovarian cancer
     Dosage: ON 14-JUN-2017 THE PATIENT RECEIVED LAST DOSE OF BEVACIZUMAB BEFORE THE EVENT.
     Route: 042
     Dates: start: 20170125, end: 20170614
  3. CARBOPLATIN [Suspect]
     Active Substance: CARBOPLATIN
     Indication: Ovarian cancer
     Dosage: AUC = 5, D1)?ON 14-JUN-2017 THE PATIENT RECEIVED LAST DOSE OF CARBOPLATIN BEFORE THE EVENT
     Route: 042
     Dates: start: 20170125, end: 20170614
  4. DOXORUBICIN [Suspect]
     Active Substance: DOXORUBICIN
     Indication: Ovarian cancer
     Dosage: ON 14-JUN-2017 THE PATIENT RECEIVED LAST DOSE OF PEGYLATED LIPOSOMAL DOXORUBICIN BEFORE THE EVENT.
     Route: 042
     Dates: start: 20170125
  5. OXYCODONE HYDROCHLORIDE [Concomitant]
     Active Substance: OXYCODONE HYDROCHLORIDE
  6. VALACYCLOVIR HYDROCHLORIDE [Concomitant]
     Active Substance: VALACYCLOVIR HYDROCHLORIDE
  7. INNOHEP [Concomitant]
     Active Substance: TINZAPARIN SODIUM
  8. ZOLPIDEM [Concomitant]
     Active Substance: ZOLPIDEM TARTRATE
  9. PAROXETINE [Concomitant]
     Active Substance: PAROXETINE
  10. BROMAZEPAM [Concomitant]
     Active Substance: BROMAZEPAM
  11. PANTOPRAZOLE [Concomitant]
     Active Substance: PANTOPRAZOLE
  12. ACETAMINOPHEN [Concomitant]
     Active Substance: ACETAMINOPHEN
  13. TINZAPARIN SODIUM [Concomitant]
     Active Substance: TINZAPARIN SODIUM
  14. PREDNISOLONE [Concomitant]
     Active Substance: PREDNISOLONE
  15. PRIMPERAN [Concomitant]
     Active Substance: METOCLOPRAMIDE HYDROCHLORIDE
  16. SODIUM BICARBONATE [Concomitant]
     Active Substance: SODIUM BICARBONATE

REACTIONS (1)
  - Intestinal obstruction [Fatal]

NARRATIVE: CASE EVENT DATE: 20170623
